FAERS Safety Report 9555367 (Version 1)
Quarter: 2013Q3

REPORT INFORMATION
  Report Type: Spontaneous
  Country: US (occurrence: None)
  Receive Date: 20130816
  Receipt Date: 20130816
  Transmission Date: 20140515
  Serious: No
  Sender: FDA-Public Use
  Company Number: US-011988

PATIENT
  Age: 58 Year
  Sex: Female
  Weight: 53.52 kg

DRUGS (3)
  1. PICO-SALAX (NOT SPECIFIED) [Suspect]
     Indication: BOWEL PREPARATION
     Dates: start: 20130609, end: 20130609
  2. METFORMIN [Concomitant]
  3. LORAZEPAM [Concomitant]
     Dosage: FIRST PACKET @ 2 PM AND SECOND PACKET @ 8PM

REACTIONS (1)
  - Drug ineffective [None]
